FAERS Safety Report 11855312 (Version 1)
Quarter: 2015Q4

REPORT INFORMATION
  Report Type: Spontaneous
  Country: US (occurrence: None)
  Receive Date: 20151218
  Receipt Date: 20151218
  Transmission Date: 20160305
  Serious: Yes (Other)
  Sender: FDA-Public Use
  Company Number: None

PATIENT
  Age: 58 Year
  Sex: Female

DRUGS (36)
  1. BUT/ASA/CAF [Concomitant]
  2. TINDAMAX [Concomitant]
     Active Substance: TINIDAZOLE
  3. VAGIFEM [Concomitant]
     Active Substance: ESTRADIOL
  4. DIAZEPAM. [Concomitant]
     Active Substance: DIAZEPAM
  5. WELLBUTRIN [Concomitant]
     Active Substance: BUPROPION HYDROCHLORIDE
  6. CLIMARA [Concomitant]
     Active Substance: ESTRADIOL
  7. VITAMIN D [Concomitant]
     Active Substance: CHOLECALCIFEROL
  8. VYVANSE [Concomitant]
     Active Substance: LISDEXAMFETAMINE DIMESYLATE
  9. NITROFURANTOIN. [Concomitant]
     Active Substance: NITROFURANTOIN
  10. FLUCONAZOLE. [Concomitant]
     Active Substance: FLUCONAZOLE
  11. METHOTREXATE [Concomitant]
     Active Substance: METHOTREXATE
  12. VENLAFAXINE [Concomitant]
     Active Substance: VENLAFAXINE HYDROCHLORIDE
  13. ALPRAZOLAM. [Concomitant]
     Active Substance: ALPRAZOLAM
  14. LEFLUNOMIDE. [Concomitant]
     Active Substance: LEFLUNOMIDE
  15. IMITREX [Concomitant]
     Active Substance: SUMATRIPTAN\SUMATRIPTAN SUCCINATE
  16. ASTELIN [Concomitant]
     Active Substance: AZELASTINE HYDROCHLORIDE
  17. ARTHROTEC [Concomitant]
     Active Substance: DICLOFENAC SODIUM\MISOPROSTOL
  18. FOLIC ACID. [Concomitant]
     Active Substance: FOLIC ACID
  19. VALACYCLOVIR [Concomitant]
     Active Substance: VALACYCLOVIR HYDROCHLORIDE
  20. METRONIDAZOLE. [Concomitant]
     Active Substance: METRONIDAZOLE
  21. PAROXETINE [Concomitant]
     Active Substance: PAROXETINE\PAROXETINE HYDROCHLORIDE
  22. DOXYCYLINE [Concomitant]
     Active Substance: DOXYCYCLINE
  23. NYSTATIN. [Concomitant]
     Active Substance: NYSTATIN
  24. ENBREL [Suspect]
     Active Substance: ETANERCEPT
     Indication: RHEUMATOID ARTHRITIS
     Route: 058
  25. CLOTRIMAZOLE/BETAMETHASONE [Concomitant]
  26. NEXIUM [Concomitant]
     Active Substance: ESOMEPRAZOLE MAGNESIUM
  27. ABILIFY [Concomitant]
     Active Substance: ARIPIPRAZOLE
  28. CALCIUM [Concomitant]
     Active Substance: CALCIUM
  29. COLCHICINE. [Concomitant]
     Active Substance: COLCHICINE
  30. AMOXICLAV [Concomitant]
     Active Substance: AMOXICILLIN\CLAVULANIC ACID
  31. PROVIGIL [Concomitant]
     Active Substance: MODAFINIL
  32. CIPROFLOXACIN. [Concomitant]
     Active Substance: CIPROFLOXACIN
  33. INVOX [Concomitant]
  34. SMZ-TMP [Concomitant]
     Active Substance: SULFAMETHOXAZOLE\TRIMETHOPRIM
  35. LUNESTA [Concomitant]
     Active Substance: ESZOPICLONE
  36. DULOXETINE. [Concomitant]
     Active Substance: DULOXETINE

REACTIONS (2)
  - Drug dose omission [None]
  - Sinusitis [None]

NARRATIVE: CASE EVENT DATE: 201512
